FAERS Safety Report 13162115 (Version 2)
Quarter: 2017Q1

REPORT INFORMATION
  Report Type: Spontaneous
  Country: US (occurrence: US)
  Receive Date: 20170130
  Receipt Date: 20170310
  Transmission Date: 20170428
  Serious: No
  Sender: FDA-Public Use
  Company Number: US-PFIZER INC-2017036522

PATIENT
  Age: 53 Year
  Sex: Female

DRUGS (55)
  1. VIOXX [Suspect]
     Active Substance: ROFECOXIB
     Indication: OSTEOARTHRITIS
     Dosage: UNK
     Route: 048
  2. TERAZOL [Suspect]
     Active Substance: TERCONAZOLE
     Indication: OSTEOARTHRITIS
     Dosage: UNK
     Route: 048
  3. ASPIRIN (E.C.) [Concomitant]
     Active Substance: ASPIRIN
     Dosage: 81 MG, DAILY (AS DIRECTED)
     Route: 048
     Dates: start: 20140513
  4. CYCLOBENZAPRINE HCL [Concomitant]
     Active Substance: CYCLOBENZAPRINE HYDROCHLORIDE
     Dosage: 10 MG, 3X/DAY (EVERY 8HOURS)
     Route: 048
     Dates: start: 20140513
  5. LAMICTAL [Concomitant]
     Active Substance: LAMOTRIGINE
     Dosage: 100 MG, DAILY
     Route: 048
     Dates: start: 20150529
  6. PHENAZOPYRIDINE HCL [Concomitant]
     Active Substance: PHENAZOPYRIDINE HYDROCHLORIDE
     Dosage: 100MG, 3X/DAY AFTER MEALS (AS NEEDED)
     Route: 048
     Dates: start: 20161220
  7. TAMSULOSIN HCL [Concomitant]
     Active Substance: TAMSULOSIN
     Dosage: 0.4 MG, DAILY
     Route: 048
     Dates: start: 20150911, end: 20160513
  8. VOLTAREN [Concomitant]
     Active Substance: DICLOFENAC SODIUM
     Dosage: APPLY 1-2 GRAMS IN AREA OF PAIN), AS NEEDED
     Route: 062
     Dates: start: 20140725, end: 20160513
  9. LINZESS [Concomitant]
     Active Substance: LINACLOTIDE
     Dosage: 290 UG, DAILY
     Route: 048
     Dates: start: 20150217, end: 20170123
  10. PROVENTIL HFA [Concomitant]
     Active Substance: ALBUTEROL SULFATE
     Dosage: SUFFICIENT AERS
     Route: 055
     Dates: end: 20170123
  11. ZYRTEC [Concomitant]
     Active Substance: CETIRIZINE HYDROCHLORIDE
     Dosage: 10 MG, UNK
     Route: 048
     Dates: start: 20140513, end: 20170123
  12. OXYCODONE HYDROCHLORIDE. [Concomitant]
     Active Substance: OXYCODONE HYDROCHLORIDE
     Dosage: TAKE 1 OR 2 EVERY 4HOURS, AS NEEDED
     Route: 048
     Dates: start: 20140513
  13. PREMARIN [Concomitant]
     Active Substance: ESTROGENS, CONJUGATED
     Dosage: APPLY 1/2GRAM, 2X/DAY
     Route: 067
     Dates: start: 20140513, end: 20160513
  14. CIPROFLOXACIN HCL [Concomitant]
     Active Substance: CIPROFLOXACIN HYDROCHLORIDE
     Dosage: 250MG, 2X/DAY (EVERY 12 HOURS DAILY)
     Route: 048
     Dates: start: 20150911, end: 20151007
  15. CITRUCEL [Concomitant]
     Active Substance: METHYLCELLULOSE (4000 MPA.S)
     Dosage: UNK (SUFFICIENT TABS)
     Dates: end: 20170123
  16. MELOXICAM. [Concomitant]
     Active Substance: MELOXICAM
     Dosage: 15 MG, DAILY
     Route: 048
     Dates: start: 20140513, end: 20150217
  17. OXYBUTYNIN CHLORIDE. [Concomitant]
     Active Substance: OXYBUTYNIN CHLORIDE
     Indication: BLADDER DISORDER
     Dosage: 5 MG, AS NEEDED (TAKE ONE TABLET BY MOUTH THREE TIMES DAILY)
     Route: 048
     Dates: start: 20160708, end: 20170123
  18. VOLTAREN [Concomitant]
     Active Substance: DICLOFENAC SODIUM
     Indication: PAIN
     Dosage: SUFFICIENT GEL
     Route: 062
     Dates: end: 20170123
  19. ASA [Concomitant]
     Active Substance: ASPIRIN
     Dosage: 81 MG, DAILY
  20. METOPROLOL SUCCINATE. [Concomitant]
     Active Substance: METOPROLOL SUCCINATE
     Dosage: 1.5 DF, DAILY
     Route: 048
     Dates: start: 20160330, end: 20160513
  21. OXYCODONE HYDROCHLORIDE. [Concomitant]
     Active Substance: OXYCODONE HYDROCHLORIDE
     Dosage: TAKE ONE-HALF TO ONE TABLET EVERY 4 HOURS AS NEEDED
     Route: 048
     Dates: start: 20160301, end: 20160513
  22. PREMARIN [Concomitant]
     Active Substance: ESTROGENS, CONJUGATED
     Dosage: UNK (SUFFICIENT CREA)
     Route: 067
     Dates: end: 20170123
  23. CEPHALEXIN. [Concomitant]
     Active Substance: CEPHALEXIN
     Dosage: 500MG, 3X/DAY (UNTIL GONE)
     Route: 048
     Dates: start: 20160601, end: 20160728
  24. ONDANSETRON [Concomitant]
     Active Substance: ONDANSETRON
     Dosage: 4 MG, 3X/DAY (FOR 5 DAYS)
     Route: 048
     Dates: start: 20160319, end: 20160513
  25. PRILOSEC [Concomitant]
     Active Substance: OMEPRAZOLE MAGNESIUM
     Dosage: 20 MG, 2X/DAY
     Route: 048
     Dates: start: 20140513, end: 20140613
  26. CLONAZEPAM. [Concomitant]
     Active Substance: CLONAZEPAM
     Dosage: 0.5 MG, 3X/DAY
     Route: 048
     Dates: start: 20140513
  27. LYRICA [Concomitant]
     Active Substance: PREGABALIN
     Dosage: 75 MG, 2X/DAY
     Route: 048
     Dates: start: 20140513
  28. METOPROLOL SUCCINATE. [Concomitant]
     Active Substance: METOPROLOL SUCCINATE
     Dosage: 25 MG, 2X/DAY
     Route: 048
     Dates: start: 20140513, end: 20140725
  29. OPANA [Concomitant]
     Active Substance: OXYMORPHONE HYDROCHLORIDE
     Dosage: 15 MG, 2X/DAY
     Route: 048
     Dates: start: 20170223
  30. PREMARIN [Concomitant]
     Active Substance: ESTROGENS, CONJUGATED
     Dosage: PEA-SIZED AMOUNT, 3-4X/WEEK
     Route: 067
     Dates: start: 20170123
  31. METOPROLOL TARTRATE. [Concomitant]
     Active Substance: METOPROLOL TARTRATE
     Dosage: 50 MG, 2X/DAY
     Route: 048
     Dates: start: 20140725, end: 20150217
  32. OXYCONTIN [Concomitant]
     Active Substance: OXYCODONE HYDROCHLORIDE
     Dosage: 1 TABLET EVERY 12 HOURS DAILY
     Route: 048
     Dates: start: 20140513, end: 20160330
  33. METOPROLOL SUCCINATE. [Concomitant]
     Active Substance: METOPROLOL SUCCINATE
     Dosage: 75MG=3TABLETS, DAILY
     Route: 048
     Dates: start: 20150217
  34. SIMVASTATIN. [Concomitant]
     Active Substance: SIMVASTATIN
     Dosage: 20 MG, 1X/DAY BEDTIME
     Route: 048
     Dates: start: 20140513
  35. AFLURIA [Concomitant]
     Active Substance: INFLUENZA VIRUS VACCINE TRIVALENT TYPE A+B AFLURIA
     Dosage: UNK
     Dates: end: 20170123
  36. CIPROFLOXACIN HCL [Concomitant]
     Active Substance: CIPROFLOXACIN HYDROCHLORIDE
     Dosage: 500 MG, 2X/DAY
     Route: 048
     Dates: start: 20160517, end: 20160601
  37. METRONIDAZOLE. [Concomitant]
     Active Substance: METRONIDAZOLE
     Dosage: INSERT 1 APPLICATORFUL VAGINALLY DAILY AT BEDTIME
     Route: 067
     Dates: start: 20151223, end: 20160513
  38. OXYCONTIN [Concomitant]
     Active Substance: OXYCODONE HYDROCHLORIDE
     Dosage: 1 IN AM AND 2 IN PM
     Route: 048
     Dates: start: 20160120, end: 20170223
  39. TRAZODONE HYDROCHLORIDE. [Concomitant]
     Active Substance: TRAZODONE HYDROCHLORIDE
     Dosage: 1/2TABLET-1TABLET AT BEDTIME
     Route: 048
     Dates: start: 20140513, end: 20150812
  40. VAGIFEM [Concomitant]
     Active Substance: ESTRADIOL
     Dosage: INSERT ONE TABLET IN THE VAGINAL AREA 3 TO 4 TIMES/ WEEK)
     Route: 067
     Dates: start: 20161221, end: 20161222
  41. MOBIC [Concomitant]
     Active Substance: MELOXICAM
     Dosage: 15 MG, UNK
  42. CYMBALTA [Concomitant]
     Active Substance: DULOXETINE HYDROCHLORIDE
     Dosage: 60 MG, 2X/DAY
     Route: 048
     Dates: start: 20140513
  43. PHENAZOPYRIDINE HCL [Concomitant]
     Active Substance: PHENAZOPYRIDINE HYDROCHLORIDE
     Dosage: 200 MG, 2X/DAY (FOR 2 DAYS)
     Route: 048
     Dates: start: 20160708, end: 20170123
  44. CIPROFLOXACIN HCL [Concomitant]
     Active Substance: CIPROFLOXACIN HYDROCHLORIDE
     Dosage: 500 MG, 2X/DAY
     Route: 048
     Dates: start: 20160411, end: 20160420
  45. CIPROFLOXACIN HCL [Concomitant]
     Active Substance: CIPROFLOXACIN HYDROCHLORIDE
     Dosage: 500MG, 2X/DAY (EVERY 12 HOURS DAILY)
     Route: 048
     Dates: start: 20161220, end: 20170123
  46. CLINDAMYCIN HCL [Concomitant]
     Active Substance: CLINDAMYCIN HYDROCHLORIDE
     Dosage: 150 MG, UNK
     Route: 048
     Dates: start: 20160912, end: 20170123
  47. ESTRACE [Concomitant]
     Active Substance: ESTRADIOL
     Dosage: APPLY A PEA-SIZED AMOUNT EVERY M-W-F
     Route: 067
     Dates: start: 20161222, end: 20170123
  48. FLUCONAZOLE. [Concomitant]
     Active Substance: FLUCONAZOLE
     Dosage: 150 MG, UNK (1 TABS)
     Route: 048
     Dates: start: 20161109, end: 20170123
  49. OXYCONTIN [Concomitant]
     Active Substance: OXYCODONE HYDROCHLORIDE
     Dosage: HALF TAB TO 1 TABLET EVERY 4HOURS AS NEEDED
     Dates: start: 20160301, end: 20160513
  50. CELEBREX [Suspect]
     Active Substance: CELECOXIB
     Indication: OSTEOARTHRITIS
     Dosage: 1 UNK, UNK
     Route: 048
  51. WELLBUTRIN SR [Concomitant]
     Active Substance: BUPROPION HYDROCHLORIDE
     Dosage: 150 MG, 2X/DAY (ONE TABLET BY MOUTH EVERY MORNING AND THEN TAKE ONE TABLET AT 2:00 PM)
     Route: 048
     Dates: start: 20150217
  52. BACTRIM [Concomitant]
     Active Substance: SULFAMETHOXAZOLE\TRIMETHOPRIM
     Dosage: 1 TABLET AS NEEDED AFTER SEX
     Route: 048
     Dates: start: 20161228
  53. CIPROFLOXACIN HCL [Concomitant]
     Active Substance: CIPROFLOXACIN HYDROCHLORIDE
     Dosage: 500 MG, 2X/DAY
     Route: 048
     Dates: start: 20160321, end: 20160411
  54. PREVACID [Concomitant]
     Active Substance: LANSOPRAZOLE
     Dosage: 15 MG, UNK
     Route: 048
     Dates: end: 20170123
  55. VITAMIN D [Concomitant]
     Active Substance: CHOLECALCIFEROL
     Dosage: SUFFICIENT CAPS
     Dates: end: 20170123

REACTIONS (3)
  - Drug hypersensitivity [Unknown]
  - Rash [Unknown]
  - Urticaria [Recovered/Resolved]
